FAERS Safety Report 17374424 (Version 2)
Quarter: 2020Q1

REPORT INFORMATION
  Report Type: Spontaneous
  Country: US (occurrence: US)
  Receive Date: 20200205
  Receipt Date: 20200312
  Transmission Date: 20200409
  Serious: No
  Sender: FDA-Public Use
  Company Number: US-PFIZER INC-2020046701

PATIENT
  Age: 49 Year
  Sex: Female
  Weight: 58.97 kg

DRUGS (2)
  1. CYTOMEL [Suspect]
     Active Substance: LIOTHYRONINE SODIUM
     Indication: HYPOTHYROIDISM
     Dosage: 112.5 UG, 1X/DAY (BUT IT CAN ADJUST TO 137.5MCG AT TIMES)
     Route: 048
     Dates: start: 201201
  2. CYTOMEL [Suspect]
     Active Substance: LIOTHYRONINE SODIUM
     Dosage: 150 UG, DAILY (50 MCG TABLET QTY 90 DAY SUPPLY 30)

REACTIONS (4)
  - Therapeutic response unexpected [Unknown]
  - Exposure during pregnancy [Unknown]
  - Pre-existing condition improved [Unknown]
  - Prescribed overdose [Unknown]
